FAERS Safety Report 12369849 (Version 1)
Quarter: 2016Q2

REPORT INFORMATION
  Report Type: Spontaneous
  Country: US (occurrence: None)
  Receive Date: 20160513
  Receipt Date: 20160513
  Transmission Date: 20160815
  Serious: No
  Sender: FDA-Public Use
  Company Number: None

PATIENT
  Age: 51 Year
  Sex: Male

DRUGS (1)
  1. DAKLINZA [Suspect]
     Active Substance: DACLATASVIR
     Dosage: 1QD
     Route: 048
     Dates: start: 201604

REACTIONS (1)
  - Eye disorder [None]

NARRATIVE: CASE EVENT DATE: 20160512
